FAERS Safety Report 4827419-9 (Version None)
Quarter: 2005Q4

REPORT INFORMATION
  Report Type: 
  Country: None (occurrence: None)
  Receive Date: 20051110
  Receipt Date: 20051027
  Transmission Date: 20060501
  Serious: Yes (Other)
  Sender: FDA-Public Use
  Company Number: SUS1-2005-00808

PATIENT
  Age: 19 Year
  Sex: Male

DRUGS (3)
  1. PENTASA [Suspect]
     Indication: COLITIS ULCERATIVE
     Dosage: SEE IMAGE, ORAL
     Route: 048
     Dates: start: 20050906, end: 20050911
  2. PENTASA [Suspect]
     Indication: COLITIS ULCERATIVE
     Dosage: SEE IMAGE, ORAL
     Route: 048
     Dates: start: 20050912, end: 20050930
  3. PENTASA [Suspect]
     Indication: COLITIS ULCERATIVE
     Dosage: 1000 MG, RECTAL
     Route: 054
     Dates: start: 20050920, end: 20050930

REACTIONS (1)
  - PNEUMONIA [None]
